FAERS Safety Report 18777893 (Version 2)
Quarter: 2021Q3

REPORT INFORMATION
  Report Type: Spontaneous
  Country: KR (occurrence: KR)
  Receive Date: 20210123
  Receipt Date: 20210827
  Transmission Date: 20211014
  Serious: Yes (Other)
  Sender: FDA-Public Use
  Company Number: KR-LEADINGPHARMA-KP-2021LEALIT00022

PATIENT
  Age: 19 Year
  Sex: Female

DRUGS (12)
  1. VITAMIN E NOS [Concomitant]
     Active Substance: .ALPHA.-TOCOPHEROL
     Indication: TARDIVE DYSKINESIA
  2. CLONAZEPAM. [Concomitant]
     Active Substance: CLONAZEPAM
     Indication: DYSTONIA
     Route: 065
  3. CLONAZEPAM. [Concomitant]
     Active Substance: CLONAZEPAM
     Indication: TARDIVE DYSKINESIA
  4. ARIPIPRAZOLE. [Concomitant]
     Active Substance: ARIPIPRAZOLE
     Indication: DYSTONIA
     Route: 065
  5. ARIPIPRAZOLE. [Concomitant]
     Active Substance: ARIPIPRAZOLE
     Indication: TARDIVE DYSKINESIA
  6. LORAZEPAM TABLETS USP [Suspect]
     Active Substance: LORAZEPAM
     Indication: TARDIVE DYSKINESIA
     Route: 065
  7. TRIHEXYPHENIDYL [Concomitant]
     Active Substance: TRIHEXYPHENIDYL
     Indication: TARDIVE DYSKINESIA
     Route: 065
  8. PALIPERIDONE. [Concomitant]
     Active Substance: PALIPERIDONE
     Indication: TARDIVE DYSKINESIA
     Route: 065
  9. PALIPERIDONE. [Concomitant]
     Active Substance: PALIPERIDONE
     Indication: DYSTONIA
  10. TRIHEXYPHENIDYL [Concomitant]
     Active Substance: TRIHEXYPHENIDYL
     Indication: DYSTONIA
  11. LORAZEPAM TABLETS USP [Suspect]
     Active Substance: LORAZEPAM
     Indication: DYSTONIA
  12. VITAMIN E NOS [Concomitant]
     Active Substance: .ALPHA.-TOCOPHEROL
     Indication: DYSTONIA
     Route: 065

REACTIONS (1)
  - Drug ineffective for unapproved indication [None]
